FAERS Safety Report 19957385 (Version 1)
Quarter: 2021Q4

REPORT INFORMATION
  Report Type: Report from Study
  Country: IT (occurrence: IT)
  Receive Date: 20211014
  Receipt Date: 20211014
  Transmission Date: 20220303
  Serious: Yes (Hospitalization)
  Sender: FDA-Public Use
  Company Number: None

PATIENT
  Age: 63 Year
  Sex: Female

DRUGS (2)
  1. RISPERIDONE [Suspect]
     Active Substance: RISPERIDONE
     Indication: Schizophrenia
     Dosage: 20MILLIGRAM
     Route: 048
     Dates: start: 20210903, end: 20210903
  2. OLANZAPINE [Suspect]
     Active Substance: OLANZAPINE
     Indication: Schizophrenia
     Dosage: 120MILLIGRAM
     Route: 048
     Dates: start: 20210903, end: 20210903

REACTIONS (1)
  - Sopor [Unknown]

NARRATIVE: CASE EVENT DATE: 20210903
